FAERS Safety Report 9345809 (Version 3)
Quarter: 2014Q3

REPORT INFORMATION
  Report Type: Report from Study
  Country: US (occurrence: US)
  Receive Date: 20130613
  Receipt Date: 20140918
  Transmission Date: 20150326
  Serious: Yes (Hospitalization, Other)
  Sender: FDA-Public Use
  Company Number: US-ROCHE-1236069

PATIENT
  Age: 82 Year
  Sex: Male
  Weight: 80.4 kg

DRUGS (2)
  1. RANIBIZUMAB [Suspect]
     Active Substance: RANIBIZUMAB
     Route: 050
     Dates: start: 20121107
  2. RANIBIZUMAB [Suspect]
     Active Substance: RANIBIZUMAB
     Indication: AGE-RELATED MACULAR DEGENERATION
     Route: 050
     Dates: start: 20091217

REACTIONS (7)
  - Epistaxis [Recovered/Resolved]
  - Small intestinal obstruction [Recovered/Resolved]
  - Prostate cancer [Not Recovered/Not Resolved]
  - Colon cancer [Recovered/Resolved]
  - Gastric dilatation [Recovered/Resolved]
  - Diarrhoea [Unknown]
  - Anaemia [Unknown]

NARRATIVE: CASE EVENT DATE: 2010
